FAERS Safety Report 11272453 (Version 4)
Quarter: 2015Q3

REPORT INFORMATION
  Report Type: Spontaneous
  Country: US (occurrence: US)
  Receive Date: 20150715
  Receipt Date: 20150907
  Transmission Date: 20151125
  Serious: No
  Sender: FDA-Public Use
  Company Number: US-BIOGENIDEC-2015BI096857

PATIENT
  Age: 40 Year
  Sex: Female

DRUGS (1)
  1. TECFIDERA [Suspect]
     Active Substance: DIMETHYL FUMARATE
     Indication: MULTIPLE SCLEROSIS
     Route: 048
     Dates: start: 20150629, end: 20150708

REACTIONS (13)
  - Dyspepsia [Recovered/Resolved]
  - Feeling hot [Unknown]
  - Formication [Recovered/Resolved]
  - Headache [Unknown]
  - Gastric disorder [Unknown]
  - Vomiting [Recovered/Resolved]
  - Skin burning sensation [Unknown]
  - Diarrhoea [Unknown]
  - Pruritus generalised [Recovered/Resolved]
  - Migraine [Unknown]
  - Hypersensitivity [Recovered/Resolved]
  - Nausea [Unknown]
  - Erythema [Unknown]

NARRATIVE: CASE EVENT DATE: 20150630
